FAERS Safety Report 24695039 (Version 1)
Quarter: 2024Q4

REPORT INFORMATION
  Report Type: Spontaneous
  Country: US (occurrence: None)
  Receive Date: 20241204
  Receipt Date: 20241204
  Transmission Date: 20250115
  Serious: Yes (Hospitalization)
  Sender: Public
  Company Number: None

PATIENT
  Sex: Female
  Weight: 17.5 kg

DRUGS (5)
  1. CALASPARGASE PEGOL [Suspect]
     Active Substance: CALASPARGASE PEGOL
     Dates: end: 20241115
  2. DOXORUBICIN HYDROCHLORIDE [Suspect]
     Active Substance: DOXORUBICIN HYDROCHLORIDE
     Dates: end: 20241126
  3. METHOTREXATE [Suspect]
     Active Substance: METHOTREXATE
     Dates: end: 20241112
  4. VINCRISTINE SULFATE [Suspect]
     Active Substance: VINCRISTINE SULFATE
     Dates: end: 20241126
  5. BLINATUMOMAB [Suspect]
     Active Substance: BLINATUMOMAB

REACTIONS (3)
  - Tachycardia [None]
  - Escherichia test positive [None]
  - Sepsis [None]

NARRATIVE: CASE EVENT DATE: 20241126
